FAERS Safety Report 4647355-0 (Version None)
Quarter: 2005Q2

REPORT INFORMATION
  Report Type: 
  Country: None (occurrence: None)
  Receive Date: 20050426
  Receipt Date: 20050426
  Transmission Date: 20051028
  Serious: No
  Sender: FDA-Public Use
  Company Number: None

PATIENT
  Sex: Male

DRUGS (1)
  1. PAXIL CR [Suspect]
     Indication: INSOMNIA
     Dosage: 25MG  QD PRN  ORAL
     Route: 048
     Dates: start: 20050312, end: 20050423

REACTIONS (2)
  - ABNORMAL DREAMS [None]
  - DELUSION [None]
